FAERS Safety Report 6505107-0 (Version None)
Quarter: 2009Q4

REPORT INFORMATION
  Report Type: 
  Country: None (occurrence: None)
  Receive Date: 20091218
  Receipt Date: 20091206
  Transmission Date: 20100525
  Serious: Yes (Hospitalization)
  Sender: FDA-Public Use
  Company Number: PHHY2009KR54151

PATIENT
  Age: 12 Year
  Sex: Female

DRUGS (3)
  1. TRILEPTAL [Suspect]
     Indication: CONVULSION
     Dosage: UNK MG, UNK
     Route: 048
     Dates: start: 20050101
  2. TRILEPTAL [Suspect]
     Dosage: UNK
     Route: 048
     Dates: start: 20071201, end: 20080401
  3. TRILEPTAL [Suspect]
     Dosage: 750 MG, UNK
     Route: 048
     Dates: start: 20091120, end: 20091202

REACTIONS (5)
  - ABNORMAL BEHAVIOUR [None]
  - CONVULSION [None]
  - DECREASED APPETITE [None]
  - IRRITABILITY [None]
  - SUICIDAL IDEATION [None]
